FAERS Safety Report 8342737-8 (Version None)
Quarter: 2012Q2

REPORT INFORMATION
  Report Type: 
  Country: None (occurrence: None)
  Receive Date: 20120503
  Receipt Date: 20120417
  Transmission Date: 20120825
  Serious: Yes (Death)
  Sender: FDA-Public Use
  Company Number: 2012MA004959

PATIENT
  Age: 21 Year
  Sex: Male

DRUGS (7)
  1. COCAINE [Suspect]
  2. DIPHENHYDRAMINE HCL [Suspect]
  3. KADIAN [Suspect]
  4. NORDAZEPAM [Suspect]
  5. OXAZEPAM [Suspect]
  6. CHLORDIAZEPOXIDE [Suspect]
  7. HEROIN [Suspect]

REACTIONS (2)
  - ACCIDENTAL DEATH [None]
  - TOXICITY TO VARIOUS AGENTS [None]
